FAERS Safety Report 8827736 (Version 1)
Quarter: 2012Q4

REPORT INFORMATION
  Report Type: 
  Country: AT (occurrence: AT)
  Receive Date: 20121005
  Receipt Date: 20121005
  Transmission Date: 20130627
  Serious: Yes (Death, Hospitalization, Other)
  Sender: FDA-Public Use
  Company Number: AT-B.I. PHARMACEUTICALS,INC./RIDGEFIELD-2012-EU-04964GD

PATIENT
  Age: 74 Year
  Sex: Female

DRUGS (10)
  1. DABIGATRAN ETEXILATE [Suspect]
     Indication: CEREBROVASCULAR ACCIDENT PROPHYLAXIS
     Route: 048
  2. DABIGATRAN ETEXILATE [Suspect]
     Indication: ATRIAL FIBRILLATION
  3. PANTOPRAZOLE [Concomitant]
  4. NEBIVOLOL [Concomitant]
  5. MIRTAZAPINE [Concomitant]
  6. SPIRONOLACTONE [Concomitant]
  7. SERTRALINE [Concomitant]
  8. TORASEMIDE [Concomitant]
  9. PANCREATIN [Concomitant]
  10. AMIODARONE [Concomitant]

REACTIONS (11)
  - Enterococcal sepsis [Fatal]
  - Endocarditis enterococcal [Fatal]
  - Endocarditis [Fatal]
  - Pyelonephritis [Unknown]
  - Renal abscess [Unknown]
  - Cardiac valve vegetation [Unknown]
  - Hypotension [Unknown]
  - Haematemesis [Unknown]
  - Melaena [Unknown]
  - Candidiasis [Unknown]
  - Bacteroides infection [Unknown]
